FAERS Safety Report 5004799-5 (Version None)
Quarter: 2006Q1

REPORT INFORMATION
  Report Type: 
  Country: None (occurrence: None)
  Receive Date: 20060321
  Receipt Date: 20060126
  Transmission Date: 20060701
  Serious: No
  Sender: FDA-Public Use
  Company Number: YPA20050648

PATIENT
  Age: 79 Year
  Sex: Female

DRUGS (5)
  1. VESICARE [Suspect]
     Indication: BLADDER DISORDER
     Dosage: 5 MG, UID/QD, ORAL
     Route: 048
     Dates: start: 20051101, end: 20051201
  2. HYZAAR [Concomitant]
  3. PLENDIL [Concomitant]
  4. FOSAMAX [Concomitant]
  5. VITAMINS [Concomitant]

REACTIONS (1)
  - CHEST PAIN [None]
